FAERS Safety Report 8791554 (Version 1)
Quarter: 2012Q4

REPORT INFORMATION
  Report Type: Spontaneous
  Country: DK (occurrence: None)
  Receive Date: 20120913
  Receipt Date: 20120913
  Transmission Date: 20130627
  Serious: Yes (Disabling)
  Sender: FDA-Public Use
  Company Number: 2012MA010793

PATIENT
  Age: 24 Year
  Sex: Female

DRUGS (1)
  1. VENLAFAXINE HYDROCHLORIDE [Suspect]
     Indication: POSTNATAL DEPRESSION (EXCL PSYCHOSIS)
     Route: 048
     Dates: start: 20090823, end: 20120820

REACTIONS (10)
  - Weight increased [None]
  - Withdrawal syndrome [None]
  - Dizziness [None]
  - Headache [None]
  - Depression [None]
  - Mental disorder [None]
  - Screaming [None]
  - Gait disturbance [None]
  - Dizziness [None]
  - Wrong technique in drug usage process [None]
